FAERS Safety Report 7122732-7 (Version None)
Quarter: 2010Q4

REPORT INFORMATION
  Report Type: 
  Country: None (occurrence: None)
  Receive Date: 20101124
  Receipt Date: 20101122
  Transmission Date: 20110411
  Serious: Yes (Other)
  Sender: FDA-Public Use
  Company Number: US-PFIZER INC-2010155750

PATIENT
  Sex: Female
  Weight: 64.399 kg

DRUGS (8)
  1. EFFEXOR XR [Suspect]
     Indication: NEUROPATHY PERIPHERAL
     Dosage: 75 MG, 1X/DAY
     Route: 048
     Dates: start: 20100901, end: 20101110
  2. EFFEXOR XR [Suspect]
     Indication: DEPRESSION
  3. MOBIC [Suspect]
     Indication: OSTEOPOROSIS
     Dosage: 7.5 MG, 1X/DAY
     Route: 048
  4. LORTAB [Concomitant]
     Indication: OSTEOPOROSIS
     Dosage: [HYDROCODONE 10MG]/[ACETAMINOPHEN 500MG], 3X/DAY
     Route: 048
  5. ADVIL [Concomitant]
     Indication: ARTHRITIS
     Dosage: 800 MG, 1X/DAY
     Route: 048
  6. ZOCOR [Concomitant]
     Indication: BLOOD CHOLESTEROL INCREASED
     Dosage: 40 MG, 1X/DAY
     Route: 048
  7. SOMA [Concomitant]
     Indication: OSTEOPOROSIS
     Dosage: 350 MG, 2X/DAY
     Route: 048
  8. ZESTRIL [Concomitant]
     Indication: HYPERTENSION
     Dosage: 10 MG, 1X/DAY
     Route: 048

REACTIONS (7)
  - AGITATION [None]
  - DIZZINESS [None]
  - FEELING JITTERY [None]
  - GASTRIC DISORDER [None]
  - INSOMNIA [None]
  - NERVOUSNESS [None]
  - WITHDRAWAL SYNDROME [None]
